FAERS Safety Report 6653957-2 (Version None)
Quarter: 2010Q1

REPORT INFORMATION
  Report Type: 
  Country: None (occurrence: None)
  Receive Date: 20100326
  Receipt Date: 20100316
  Transmission Date: 20100710
  Serious: Yes (Other)
  Sender: FDA-Public Use
  Company Number: US-JNJFOC-20100306058

PATIENT
  Age: 87 Year
  Sex: Male
  Weight: 117.94 kg

DRUGS (12)
  1. EXTRA STRENGTH TYLENOL [Suspect]
     Route: 048
  2. EXTRA STRENGTH TYLENOL [Suspect]
     Indication: ARTHRALGIA
     Dosage: 1000 MGS, ONE TO THREE TIMES DAILY, PRN
     Route: 048
  3. FUROSEMIDE [Concomitant]
     Indication: FLUID RETENTION
  4. CITALOPRAM HYDROBROMIDE [Concomitant]
     Indication: POST-TRAUMATIC STRESS DISORDER
  5. SIMVASTATIN [Concomitant]
     Indication: BLOOD CHOLESTEROL INCREASED
  6. VALSARTAN [Concomitant]
     Indication: PROPHYLAXIS
  7. INSULIN [Concomitant]
     Indication: DIABETES MELLITUS
     Dosage: NOVOLIN, 70/30 INSULIN, 48 UNITS IN AM, 15 UNITS IN PM
     Route: 058
  8. POTASSIUM [Concomitant]
     Indication: MINERAL SUPPLEMENTATION
  9. VITAMIN D [Concomitant]
     Indication: VITAMIN SUPPLEMENTATION
  10. ASPIRIN [Concomitant]
     Indication: CARDIOVASCULAR EVENT PROPHYLAXIS
  11. EYE DROPS [Concomitant]
     Indication: MACULAR DEGENERATION
  12. MULTI-VITAMINS [Concomitant]
     Indication: VITAMIN SUPPLEMENTATION

REACTIONS (2)
  - PRODUCT QUALITY ISSUE [None]
  - WHITE BLOOD CELL COUNT INCREASED [None]
